FAERS Safety Report 18108347 (Version 1)
Quarter: 2020Q3

REPORT INFORMATION
  Report Type: Report from Study
  Country: None (occurrence: IT)
  Receive Date: 20200803
  Receipt Date: 20200803
  Transmission Date: 20201103
  Serious: Yes (Hospitalization)
  Sender: FDA-Public Use
  Company Number: IT-ABBVIE-20K-083-3505670-00

PATIENT
  Age: 75 Year
  Sex: Female

DRUGS (1)
  1. MAVIRET [Suspect]
     Active Substance: GLECAPREVIR\PIBRENTASVIR
     Indication: HEPATITIS C
     Route: 048
     Dates: start: 20200617, end: 20200708

REACTIONS (5)
  - Jaundice [Unknown]
  - Hyperbilirubinaemia [Unknown]
  - Acute kidney injury [Unknown]
  - Pancytopenia [Unknown]
  - Anuria [Unknown]

NARRATIVE: CASE EVENT DATE: 20200708
